FAERS Safety Report 20564219 (Version 6)
Quarter: 2022Q4

REPORT INFORMATION
  Report Type: Report from Study
  Country: CA (occurrence: CA)
  Receive Date: 20220308
  Receipt Date: 20221217
  Transmission Date: 20230113
  Serious: Yes (Other)
  Sender: FDA-Public Use
  Company Number: CA-NOVARTISPH-NVSC2022CA053439

PATIENT
  Age: 58 Year
  Sex: Male

DRUGS (3)
  1. COSENTYX [Suspect]
     Active Substance: SECUKINUMAB
     Indication: Psoriatic arthropathy
     Dosage: 150 MG, QMO
     Route: 058
     Dates: start: 20211208
  2. GABAPENTIN SANIS [Concomitant]
     Indication: Product used for unknown indication
     Dosage: UNK
     Route: 048
     Dates: start: 2020
  3. ARAVA [Concomitant]
     Active Substance: LEFLUNOMIDE
     Indication: Product used for unknown indication
     Dosage: UNK, QD
     Route: 065

REACTIONS (10)
  - Oesophageal carcinoma [Unknown]
  - Psoriatic arthropathy [Unknown]
  - Weight decreased [Unknown]
  - Nausea [Not Recovered/Not Resolved]
  - Asthenia [Not Recovered/Not Resolved]
  - Eating disorder [Unknown]
  - Pain in extremity [Unknown]
  - Grip strength decreased [Unknown]
  - Peripheral coldness [Unknown]
  - Hypoaesthesia [Unknown]
